FAERS Safety Report 11328833 (Version 1)
Quarter: 2015Q3

REPORT INFORMATION
  Report Type: Spontaneous
  Country: US (occurrence: US)
  Receive Date: 20150731
  Receipt Date: 20150731
  Transmission Date: 20151125
  Serious: Yes (Death, Other)
  Sender: FDA-Public Use
  Company Number: US-ARIAD PHARMACEUTICALS, INC-2015US005168

PATIENT
  Age: 74 Year
  Sex: Female

DRUGS (2)
  1. STATIN [Concomitant]
     Active Substance: UNSPECIFIED INGREDIENT
     Indication: MYELODYSPLASTIC SYNDROME
  2. ICLUSIG [Suspect]
     Active Substance: PONATINIB
     Indication: MYELODYSPLASTIC SYNDROME
     Dosage: 15 MG, QD
     Route: 048
     Dates: start: 20150703

REACTIONS (4)
  - Eye pain [Unknown]
  - Cardiac arrest [Fatal]
  - Product use issue [Unknown]
  - Headache [Unknown]

NARRATIVE: CASE EVENT DATE: 20150719
